FAERS Safety Report 23147770 (Version 1)
Quarter: 2023Q4

REPORT INFORMATION
  Report Type: Other
  Country: CN (occurrence: None)
  Receive Date: 20231106
  Receipt Date: 20231106
  Transmission Date: 20240110
  Serious: Yes (Other)
  Sender: FDA-Public Use
  Company Number: CN-ROCHE-3450453

PATIENT

DRUGS (4)
  1. CAPECITABINE [Suspect]
     Active Substance: CAPECITABINE
     Indication: Colorectal cancer
     Dosage: DAY 1 TO 14
     Route: 048
  2. CAPECITABINE [Suspect]
     Active Substance: CAPECITABINE
     Dosage: TOTAL OF 6 CYCLE OF TREATMENT
     Route: 048
  3. BEVACIZUMAB [Suspect]
     Active Substance: BEVACIZUMAB
     Indication: Colorectal cancer
     Dosage: DISSOLVED IN 250 ML 0.9% SODIUM CHLORIDE SOLUTION?FIRST DOSE FOR 1.5 HOUR AND SECOND DOSE ONWARDS FO
     Route: 041
  4. OXALIPLATIN [Suspect]
     Active Substance: OXALIPLATIN
     Indication: Colorectal cancer
     Dosage: DAY 1
     Route: 041

REACTIONS (8)
  - Hepatic function abnormal [Unknown]
  - Gastrointestinal disorder [Unknown]
  - Neurotoxicity [Unknown]
  - Myelosuppression [Unknown]
  - Embolism arterial [Unknown]
  - Fibrin D dimer increased [Unknown]
  - Blood fibrinogen increased [Unknown]
  - Embolism venous [Unknown]
